FAERS Safety Report 5116510-8 (Version None)
Quarter: 2006Q3

REPORT INFORMATION
  Report Type: 
  Country: None (occurrence: None)
  Receive Date: 20060928
  Receipt Date: 20060918
  Transmission Date: 20061208
  Serious: Yes (Hospitalization, Disabling)
  Sender: FDA-Public Use
  Company Number: PHRM2006FR02601

PATIENT
  Age: 64 Year
  Sex: Male
  Weight: 72 kg

DRUGS (12)
  1. PROGRAF [Suspect]
     Indication: LIVER TRANSPLANT
     Dates: end: 20060716
  2. CIFLOX [Concomitant]
     Dates: end: 20060817
  3. FOSPHENYTOIN SODIUM [Concomitant]
     Indication: STATUS EPILEPTICUS
     Dates: start: 20060617, end: 20060717
  4. SIMULECT [Concomitant]
     Indication: LIVER TRANSPLANT
     Dates: start: 20060620, end: 20060624
  5. SUFENTA [Concomitant]
     Dates: start: 20060620, end: 20060714
  6. DIPRIVAN [Concomitant]
     Dates: start: 20060701, end: 20060722
  7. TRIFLUCAN [Concomitant]
     Dates: start: 20060706, end: 20060722
  8. LOXEN [Concomitant]
     Dates: start: 20060624, end: 20060626
  9. ESOMEPRAZOLE MAGNESIUM [Concomitant]
     Dates: start: 20060621
  10. SOLU-MEDROL [Suspect]
     Dates: start: 20060621, end: 20060820
  11. AMIODARONE HCL [Suspect]
  12. NEORAL [Suspect]
     Indication: LIVER TRANSPLANT

REACTIONS (7)
  - CONVULSION [None]
  - DRUG INTERACTION [None]
  - DRUG LEVEL FLUCTUATING [None]
  - INTENTION TREMOR [None]
  - RENAL IMPAIRMENT [None]
  - SEDATION [None]
  - STATUS EPILEPTICUS [None]
